FAERS Safety Report 18949961 (Version 1)
Quarter: 2021Q1

REPORT INFORMATION
  Report Type: Spontaneous
  Country: US (occurrence: US)
  Receive Date: 20210227
  Receipt Date: 20210227
  Transmission Date: 20210420
  Serious: No
  Sender: FDA-Public Use
  Company Number: US-TEVA-2021-US-1884272

PATIENT
  Sex: Female

DRUGS (16)
  1. OCREVUS [Concomitant]
     Active Substance: OCRELIZUMAB
  2. EPIPEN [Concomitant]
     Active Substance: EPINEPHRINE
  3. VALACICLOVIR [Concomitant]
     Active Substance: VALACYCLOVIR HYDROCHLORIDE
  4. MUPIROCIN. [Concomitant]
     Active Substance: MUPIROCIN
  5. ZYRTEC [Concomitant]
     Active Substance: CETIRIZINE HYDROCHLORIDE
  6. MODAFINIL. [Concomitant]
     Active Substance: MODAFINIL
  7. PROBIOTIC [Concomitant]
     Active Substance: PROBIOTICS NOS
  8. MOMETASONE FUROATE. [Concomitant]
     Active Substance: MOMETASONE FUROATE
  9. JUNEL FE 1/20 [Suspect]
     Active Substance: ETHINYL ESTRADIOL\NORETHINDRONE ACETATE
     Indication: MENSTRUATION IRREGULAR
     Route: 065
  10. JUNEL FE 1/20 [Suspect]
     Active Substance: ETHINYL ESTRADIOL\NORETHINDRONE ACETATE
     Indication: MENORRHAGIA
  11. COLACE [Concomitant]
     Active Substance: DOCUSATE SODIUM
  12. PRENATAL VITAMIN [Concomitant]
     Active Substance: VITAMINS
  13. ALEVE [Concomitant]
     Active Substance: NAPROXEN SODIUM
  14. VITAMIN D [Concomitant]
     Active Substance: VITAMIN D NOS
  15. BENADRYL [Concomitant]
     Active Substance: DIPHENHYDRAMINE HYDROCHLORIDE
  16. ALBUTEROL INHALER [Concomitant]
     Active Substance: ALBUTEROL

REACTIONS (2)
  - Drug ineffective [Unknown]
  - Maternal exposure during pregnancy [Unknown]
